FAERS Safety Report 21348016 (Version 1)
Quarter: 2022Q3

REPORT INFORMATION
  Report Type: Other
  Country: US (occurrence: None)
  Receive Date: 20220919
  Receipt Date: 20220919
  Transmission Date: 20221026
  Serious: Yes (Hospitalization)
  Sender: FDA-Public Use
  Company Number: US-ROCHE-3177443

PATIENT
  Age: 25 Year
  Sex: Female
  Weight: 53.572 kg

DRUGS (1)
  1. EVRYSDI [Suspect]
     Active Substance: RISDIPLAM
     Indication: Spinal muscular atrophy
     Dosage: 5MG TAKEN DAILY
     Route: 048
     Dates: start: 20210821

REACTIONS (3)
  - Flatulence [Unknown]
  - Abdominal distension [Unknown]
  - Urinary retention [Unknown]

NARRATIVE: CASE EVENT DATE: 20220301
